FAERS Safety Report 7964530-8 (Version None)
Quarter: 2011Q4

REPORT INFORMATION
  Report Type: 
  Country: None (occurrence: None)
  Receive Date: 20111208
  Receipt Date: 20111202
  Transmission Date: 20120403
  Serious: Yes (Hospitalization)
  Sender: FDA-Public Use
  Company Number: PHEH2011US01476

PATIENT
  Sex: Female
  Weight: 86.168 kg

DRUGS (22)
  1. ALBUTEROL [Concomitant]
  2. FLONASE [Concomitant]
  3. AMLODIPINE [Concomitant]
  4. AMBIEN [Concomitant]
  5. PAXIL [Concomitant]
  6. PROBIOTICS [Concomitant]
  7. VITAMIN K TAB [Concomitant]
  8. PULMOZYME [Concomitant]
     Dates: start: 20110601
  9. SPIRIVA [Concomitant]
  10. LISINOPRIL [Concomitant]
  11. BUSPAR [Concomitant]
  12. TOBI [Suspect]
     Indication: CYSTIC FIBROSIS
     Dosage: 300 MG, BID IN A CYCLE OF 28 DAYS ON AND OFF
     Dates: start: 20110501
  13. TOBI [Suspect]
     Dosage: 300 MG, BID IN A CYCLE OF 28 DAYS ON AND OFF
     Dates: start: 20110601
  14. GLIMEPIRIDE [Concomitant]
  15. MULTIVITAMINS AND D, E, FE, CA [Concomitant]
  16. DULCOLAX [Concomitant]
  17. SINGULAIR [Concomitant]
  18. ADVAIR DISKUS 100/50 [Concomitant]
  19. METFORMIN HCL [Concomitant]
  20. PREDNISONE TAB [Concomitant]
  21. LORTAB [Concomitant]
  22. PROTONIX [Concomitant]

REACTIONS (10)
  - WHEEZING [None]
  - DRY MOUTH [None]
  - HYPOTENSION [None]
  - DYSPHONIA [None]
  - CARBON DIOXIDE ABNORMAL [None]
  - BRONCHITIS [None]
  - DYSPNOEA [None]
  - DYSPHAGIA [None]
  - UNRESPONSIVE TO STIMULI [None]
  - OESOPHAGEAL CANDIDIASIS [None]
